FAERS Safety Report 7958298-9 (Version None)
Quarter: 2011Q4

REPORT INFORMATION
  Report Type: 
  Country: None (occurrence: None)
  Receive Date: 20111205
  Receipt Date: 20111123
  Transmission Date: 20120403
  Serious: Yes (Other)
  Sender: FDA-Public Use
  Company Number: CH-COVIDIEN/TYCO HEALTHCARE/MALLINCKRODT-T201102788

PATIENT
  Age: 41 Year
  Sex: Female

DRUGS (1)
  1. METHYLIN [Suspect]
     Indication: PRODUCT USED FOR UNKNOWN INDICATION
     Dosage: UNK

REACTIONS (4)
  - GROIN ABSCESS [None]
  - INCORRECT ROUTE OF DRUG ADMINISTRATION [None]
  - DRUG ABUSE [None]
  - TOXICITY TO VARIOUS AGENTS [None]
